FAERS Safety Report 23135272 (Version 2)
Quarter: 2023Q4

REPORT INFORMATION
  Report Type: Spontaneous
  Country: US (occurrence: US)
  Receive Date: 20231101
  Receipt Date: 20231113
  Transmission Date: 20240110
  Serious: Yes (Hospitalization)
  Sender: FDA-Public Use
  Company Number: US-TEVA-2023-US-2940324

PATIENT
  Age: 28 Year
  Sex: Male

DRUGS (4)
  1. CLOZAPINE [Suspect]
     Active Substance: CLOZAPINE
     Indication: Schizoaffective disorder
     Dosage: 75MG IN THE MORNING AND 450MG AT BED TIME
     Route: 065
  2. BUPROPION [Concomitant]
     Active Substance: BUPROPION
     Indication: Schizoaffective disorder
     Dosage: 150 MILLIGRAM DAILY;
     Route: 065
  3. GLYCOPYRROLATE [Concomitant]
     Active Substance: GLYCOPYRROLATE
     Indication: Salivary hypersecretion
     Dosage: 1 MILLIGRAM DAILY;
     Route: 065
  4. FLUVOXAMINE [Concomitant]
     Active Substance: FLUVOXAMINE
     Indication: Schizoaffective disorder
     Dosage: 100 MILLIGRAM DAILY;
     Route: 065

REACTIONS (2)
  - Pulmonary cavitation [Unknown]
  - Toxicity to various agents [Unknown]
